FAERS Safety Report 11242542 (Version 2)
Quarter: 2016Q2

REPORT INFORMATION
  Report Type: Spontaneous
  Country: CA (occurrence: CA)
  Receive Date: 20150707
  Receipt Date: 20160415
  Transmission Date: 20160815
  Serious: Yes (Other)
  Sender: FDA-Public Use
  Company Number: CA-ROCHE-1363991

PATIENT
  Age: 71 Year
  Sex: Female

DRUGS (9)
  1. SYMBICORT [Concomitant]
     Active Substance: BUDESONIDE\FORMOTEROL FUMARATE DIHYDRATE
  2. SINGULAIR [Concomitant]
     Active Substance: MONTELUKAST SODIUM
  3. HYDROXYZINE [Concomitant]
     Active Substance: HYDROXYZINE\HYDROXYZINE HYDROCHLORIDE
  4. PREDNISONE. [Concomitant]
     Active Substance: PREDNISONE
     Route: 065
  5. VENTOLIN [Concomitant]
     Active Substance: ALBUTEROL SULFATE
  6. RHINOCORT [Concomitant]
     Active Substance: BUDESONIDE
  7. PREDNISONE. [Concomitant]
     Active Substance: PREDNISONE
     Route: 065
  8. XOLAIR [Suspect]
     Active Substance: OMALIZUMAB
     Indication: ASTHMA
     Route: 058
     Dates: start: 20120628
  9. XOLAIR [Suspect]
     Active Substance: OMALIZUMAB
     Route: 058
     Dates: start: 20120712

REACTIONS (10)
  - Upper limb fracture [Unknown]
  - General physical health deterioration [Unknown]
  - Nasopharyngitis [Unknown]
  - Arthralgia [Unknown]
  - Asthma [Unknown]
  - Fall [Unknown]
  - Pain [Not Recovered/Not Resolved]
  - Ear pain [Unknown]
  - Fatigue [Not Recovered/Not Resolved]
  - Influenza [Unknown]

NARRATIVE: CASE EVENT DATE: 20120801
